FAERS Safety Report 17681541 (Version 1)
Quarter: 2020Q2

REPORT INFORMATION
  Report Type: Spontaneous
  Country: US (occurrence: US)
  Receive Date: 20200417
  Receipt Date: 20200417
  Transmission Date: 20200714
  Serious: Yes (Hospitalization, Other)
  Sender: FDA-Public Use
  Company Number: US-INDIVIOR US-INDV-124468-2020

PATIENT
  Age: 27 Year
  Sex: Male

DRUGS (6)
  1. BUPRENORPHINE. [Suspect]
     Active Substance: BUPRENORPHINE
     Dosage: 450 MCG, Q6H (DAY 2)
     Route: 060
  2. BUPRENORPHINE. [Suspect]
     Active Substance: BUPRENORPHINE
     Dosage: 1 MILLIGRAM, Q6H (DAY 3)
     Route: 060
  3. BUPRENORPHINE TABLET [Suspect]
     Active Substance: BUPRENORPHINE
     Indication: PRODUCT USED FOR UNKNOWN INDICATION
     Dosage: UNK
     Route: 042
  4. BUPRENORPHINE. [Suspect]
     Active Substance: BUPRENORPHINE
     Dosage: 2 MILLIGRAM, Q6H (DAY 4)
     Route: 060
  5. BUPRENORPHINE. [Suspect]
     Active Substance: BUPRENORPHINE
     Dosage: 4 MILLIGRAM, Q6H (DAY 5)
     Route: 060
  6. BUPRENORPHINE. [Suspect]
     Active Substance: BUPRENORPHINE
     Indication: DRUG USE DISORDER
     Dosage: 150 MCG, Q6H (DAY 1)
     Route: 060

REACTIONS (7)
  - Endocarditis [Unknown]
  - Septic pulmonary embolism [Unknown]
  - Off label use [Unknown]
  - Aneurysm ruptured [Unknown]
  - Wrong technique in product usage process [Unknown]
  - Unresponsive to stimuli [Unknown]
  - Intentional product use issue [Unknown]
